FAERS Safety Report 20018788 (Version 4)
Quarter: 2024Q2

REPORT INFORMATION
  Report Type: Spontaneous
  Country: CA (occurrence: CA)
  Receive Date: 20211101
  Receipt Date: 20240426
  Transmission Date: 20240715
  Serious: Yes (Other)
  Sender: FDA-Public Use
  Company Number: CA-AUROBINDO-AUR-APL-2021-044245

PATIENT
  Age: 80 Year
  Sex: Male

DRUGS (20)
  1. CEFUROXIME [Suspect]
     Active Substance: CEFUROXIME
     Indication: Product used for unknown indication
     Dosage: UNK
     Route: 065
  2. MONTELUKAST [Suspect]
     Active Substance: MONTELUKAST SODIUM
     Indication: Chronic spontaneous urticaria
     Dosage: 10 MILLIGRAM, ONCE A DAY
     Route: 048
  3. MONTELUKAST [Suspect]
     Active Substance: MONTELUKAST SODIUM
     Indication: Crohn^s disease
     Dosage: 10 MILLIGRAM, ONCE A DAY
     Route: 048
  4. CLOBETASOL [Suspect]
     Active Substance: CLOBETASOL
     Indication: Chronic spontaneous urticaria
     Dosage: UNK
     Route: 061
  5. CLOBETASOL [Suspect]
     Active Substance: CLOBETASOL
     Indication: Crohn^s disease
  6. HYDROCORTISONE [Suspect]
     Active Substance: HYDROCORTISONE
     Indication: Chronic spontaneous urticaria
     Dosage: 2 DOSAGE FORM, ONCE A DAY
     Route: 061
  7. HYDROCORTISONE [Suspect]
     Active Substance: HYDROCORTISONE
     Indication: Crohn^s disease
     Dosage: 2 DOSAGE FORM, ONCE A DAY
     Route: 061
  8. CETIRIZINE HYDROCHLORIDE [Concomitant]
     Active Substance: CETIRIZINE HYDROCHLORIDE
     Indication: Chronic spontaneous urticaria
     Dosage: 1 DOSAGE FORM, TWO TIMES A DAY
     Route: 048
  9. CETIRIZINE HYDROCHLORIDE [Concomitant]
     Active Substance: CETIRIZINE HYDROCHLORIDE
     Dosage: 1 DOSAGE FORM, TWO TIMES A DAY
     Route: 048
  10. GRAMICIDIN [Concomitant]
     Active Substance: GRAMICIDIN
     Indication: Chronic spontaneous urticaria
     Dosage: 3 DOSAGE FORM, ONCE A DAY
     Route: 061
  11. HYDROXYZINE [Concomitant]
     Active Substance: HYDROXYZINE HYDROCHLORIDE
     Indication: Chronic spontaneous urticaria
     Dosage: 2 DOSAGE FORM, ONCE A DAY
     Route: 048
  12. HYDROXYZINE [Concomitant]
     Active Substance: HYDROXYZINE HYDROCHLORIDE
     Indication: Crohn^s disease
     Dosage: 2 DOSAGE FORM, ONCE A DAY
     Route: 048
  13. MENTHOL [Concomitant]
     Active Substance: MENTHOL
     Indication: Product used for unknown indication
     Dosage: UNK
     Route: 065
  14. PREDNISONE [Concomitant]
     Active Substance: PREDNISONE
     Indication: Product used for unknown indication
     Dosage: UNK
     Route: 048
  15. PREDNISONE [Concomitant]
     Active Substance: PREDNISONE
     Dosage: UNK
     Route: 048
  16. Reactine [Concomitant]
     Indication: Chronic spontaneous urticaria
     Dosage: 2 DOSAGE FORM, ONCE A DAY
     Route: 048
  17. Reactine [Concomitant]
     Indication: Crohn^s disease
  18. VIADERM-KC [Concomitant]
     Indication: Chronic spontaneous urticaria
     Dosage: 3 DOSAGE FORM, ONCE A DAY
     Route: 061
  19. VIADERM-KC [Concomitant]
     Indication: Crohn^s disease
  20. PREDNISONE [Concomitant]
     Active Substance: PREDNISONE
     Indication: Product used for unknown indication
     Dosage: UNK
     Route: 065

REACTIONS (2)
  - Hypersensitivity [Unknown]
  - Off label use [Unknown]
